FAERS Safety Report 5316456-6 (Version None)
Quarter: 2007Q2

REPORT INFORMATION
  Report Type: 
  Country: None (occurrence: None)
  Receive Date: 20070504
  Receipt Date: 20070423
  Transmission Date: 20071010
  Serious: Yes (Hospitalization, Other)
  Sender: FDA-Public Use
  Company Number: PHEH2007US02820

PATIENT
  Age: 23 Year
  Sex: Female
  Weight: 49.886 kg

DRUGS (2)
  1. FAMVIR [Suspect]
     Indication: HERPES SIMPLEX
     Dosage: 1500 MG, ONCE/SINGLE
     Route: 048
     Dates: start: 20070227, end: 20070227
  2. LOESTRIN 1.5/30 [Concomitant]
     Indication: CONTRACEPTION

REACTIONS (14)
  - ABDOMINAL PAIN UPPER [None]
  - ASTHENIA [None]
  - CYANOSIS [None]
  - DIZZINESS [None]
  - HYDRONEPHROSIS [None]
  - HYPOAESTHESIA [None]
  - INFLAMMATION [None]
  - MUSCLE SPASMS [None]
  - NEPHRITIS [None]
  - PAIN [None]
  - PARAESTHESIA [None]
  - RESPIRATORY RATE INCREASED [None]
  - SKIN DISCOLOURATION [None]
  - SYNCOPE [None]
